FAERS Safety Report 8467869-5 (Version None)
Quarter: 2012Q2

REPORT INFORMATION
  Report Type: 
  Country: None (occurrence: None)
  Receive Date: 20120626
  Receipt Date: 20120618
  Transmission Date: 20120825
  Serious: Yes (Hospitalization, Other)
  Sender: FDA-Public Use
  Company Number: GB-ROCHE-790576

PATIENT
  Sex: Female
  Weight: 51.756 kg

DRUGS (13)
  1. LIPITOR [Concomitant]
  2. ASPIRIN [Concomitant]
  3. NITRO-DUR [Concomitant]
  4. RAMIPRIL [Concomitant]
  5. ACTEMRA [Suspect]
     Indication: RHEUMATOID ARTHRITIS
     Route: 042
  6. PREDNISONE [Concomitant]
  7. OXYCODONE HCL AND ACETAMINOPHEN [Concomitant]
  8. NORVASC [Concomitant]
  9. FOSAMAX [Concomitant]
  10. PANTOPRAZOLE SODIUM [Concomitant]
  11. BISOPROLOL FUMARATE [Concomitant]
  12. ATIVAN [Concomitant]
  13. PANTOPRAZOLE [Concomitant]

REACTIONS (5)
  - INCOHERENT [None]
  - HYPERKALAEMIA [None]
  - DEHYDRATION [None]
  - ABASIA [None]
  - THROMBOSIS [None]
